FAERS Safety Report 10084600 (Version 2)
Quarter: 2014Q2

REPORT INFORMATION
  Report Type: Report from Study
  Country: CA (occurrence: CA)
  Receive Date: 20140417
  Receipt Date: 20140521
  Transmission Date: 20141212
  Serious: Yes (Hospitalization)
  Sender: FDA-Public Use
  Company Number: CA-BRISTOL-MYERS SQUIBB COMPANY-20633749

PATIENT
  Age: 29 Year
  Sex: Male
  Weight: 117 kg

DRUGS (5)
  1. ARIPIPRAZOLE [Suspect]
     Indication: SCHIZOPHRENIA
     Dosage: 10MG-21FEB2014-21MAR14?29DAYS?TABLET
     Route: 048
     Dates: start: 20140208, end: 20140321
  2. ARIPIPRAZOLE IM DEPOT [Suspect]
     Indication: SCHIZOPHRENIA
     Route: 030
     Dates: start: 20140307
  3. RISPERDAL CONSTA [Concomitant]
     Indication: SCHIZOPHRENIA
     Dosage: INJECTION 37.5 MG EVERY 2 WEEKS 08/APR/2014 TO 08/APR/2014 AND 1 MG FROM 08/APR/2014
     Route: 030
     Dates: start: 20120517, end: 20140130
  4. RESTORIL [Concomitant]
     Indication: INSOMNIA
     Route: 048
     Dates: start: 20140402, end: 20140402
  5. COLACE [Concomitant]
     Indication: CONSTIPATION
     Route: 048
     Dates: start: 20140402, end: 20140402

REACTIONS (1)
  - Schizophrenia [Recovered/Resolved]
